FAERS Safety Report 5728470-7 (Version None)
Quarter: 2008Q2

REPORT INFORMATION
  Report Type: 
  Country: None (occurrence: None)
  Receive Date: 20080502
  Receipt Date: 20080502
  Transmission Date: 20081010
  Serious: No
  Sender: FDA-Public Use
  Company Number: None

PATIENT
  Age: 58 Year
  Sex: Female

DRUGS (22)
  1. METRONIDAZOLE HCL [Suspect]
     Dates: start: 20051011, end: 20051024
  2. MERCAPTOPURINE [Suspect]
     Dates: start: 20050816, end: 20051021
  3. REGLAN [Concomitant]
  4. GLIPIZIDE [Concomitant]
  5. METFORMIN HCL [Concomitant]
  6. TOPROL-XL [Concomitant]
  7. IMDUR [Concomitant]
  8. ATACAND/HCTZ [Concomitant]
  9. PLAVIX [Concomitant]
  10. ZETIA [Concomitant]
  11. IMDUR [Concomitant]
  12. GEMFIBROZIL [Concomitant]
  13. PREDNISONE TAB [Concomitant]
  14. SOLU-MEDROL [Concomitant]
  15. COLAZOL [Concomitant]
  16. BUDESONIDE [Concomitant]
  17. IMODIUM [Concomitant]
  18. LANTUS/HUMULIN INSULINS [Concomitant]
  19. FLUCONAZOLE [Concomitant]
  20. METRONIDAZOLE HCL [Concomitant]
  21. CIPRO [Concomitant]
  22. PRILOSEC [Concomitant]

REACTIONS (5)
  - ANORECTAL DISCOMFORT [None]
  - CHOLESTASIS [None]
  - HEPATIC STEATOSIS [None]
  - LIVER INJURY [None]
  - PANCYTOPENIA [None]
